FAERS Safety Report 5253021-3 (Version None)
Quarter: 2007Q1

REPORT INFORMATION
  Report Type: 
  Country: None (occurrence: None)
  Receive Date: 20070301
  Receipt Date: 20070227
  Transmission Date: 20070707
  Serious: Yes (Death)
  Sender: FDA-Public Use
  Company Number: SEWYE800127FEB07

PATIENT
  Sex: Male

DRUGS (10)
  1. TAZOCIN [Suspect]
     Indication: INFECTION
     Route: 042
     Dates: start: 20070207, end: 20070219
  2. APURIN [Concomitant]
  3. METOPROLOL SUCCINATE [Concomitant]
  4. DUPHALAC [Concomitant]
  5. LITALGIN [Concomitant]
  6. OMEPRAZOLE [Concomitant]
  7. DURAGESIC-100 [Concomitant]
  8. PROTAPHANE MC [Concomitant]
  9. METRONIDAZOLE [Suspect]
     Indication: INFECTION
     Dates: start: 20070207, end: 20070219
  10. FURESIS [Concomitant]

REACTIONS (1)
  - THROMBOCYTOPENIA [None]
